FAERS Safety Report 13562203 (Version 3)
Quarter: 2017Q3

REPORT INFORMATION
  Report Type: Report from Study
  Country: None (occurrence: TR)
  Receive Date: 20170519
  Receipt Date: 20170703
  Transmission Date: 20171127
  Serious: Yes (Death, Life-Threatening, Hospitalization, Other)
  Sender: FDA-Public Use
  Company Number: TR-ABBVIE-17K-161-1979568-00

PATIENT
  Age: 66 Year
  Sex: Male
  Weight: 88 kg

DRUGS (1)
  1. DUODOPA [Suspect]
     Active Substance: CARBIDOPA\LEVODOPA
     Indication: PARKINSON^S DISEASE
     Dosage: MORNING DOSE : 7.50 ML, CONTINUOUS DOSE: 3.10 ML, EXTRA DOSE: 1.00 ML
     Route: 050
     Dates: start: 20160308

REACTIONS (6)
  - Respiratory arrest [Recovered/Resolved]
  - Cardiac arrest [Recovered/Resolved]
  - Cardiac arrest [Fatal]
  - C-reactive protein increased [Fatal]
  - Parkinson^s disease [Unknown]
  - Infection [Fatal]

NARRATIVE: CASE EVENT DATE: 20170517
